FAERS Safety Report 7559982-1 (Version None)
Quarter: 2011Q2

REPORT INFORMATION
  Report Type: 
  Country: None (occurrence: None)
  Receive Date: 20110621
  Receipt Date: 20110608
  Transmission Date: 20111010
  Serious: Yes (Other)
  Sender: FDA-Public Use
  Company Number: PHHY2010DE51379

PATIENT
  Age: 72 Year
  Sex: Female

DRUGS (2)
  1. SANDOSTATIN LAR [Suspect]
     Dosage: 10 MG, QMO
  2. SANDOSTATIN [Suspect]
     Dosage: 300 UG, DAILY
     Dates: start: 20100101

REACTIONS (3)
  - ABDOMINAL PAIN [None]
  - WEIGHT DECREASED [None]
  - NAUSEA [None]
